FAERS Safety Report 25789347 (Version 1)
Quarter: 2025Q3

REPORT INFORMATION
  Report Type: Report from Study
  Country: US (occurrence: US)
  Receive Date: 20250911
  Receipt Date: 20250911
  Transmission Date: 20251021
  Serious: Yes (Hospitalization, Other)
  Sender: TAKEDA
  Company Number: US-TAKEDA-2025TUS077943

PATIENT
  Sex: Male

DRUGS (1)
  1. MARIBAVIR [Suspect]
     Active Substance: MARIBAVIR
     Indication: Cytomegalovirus infection
     Dosage: 400 MILLIGRAM, BID

REACTIONS (7)
  - Liver transplant rejection [Unknown]
  - Renal disorder [Unknown]
  - Skin exfoliation [Unknown]
  - Urticaria [Unknown]
  - Blister [Recovered/Resolved]
  - Scab [Recovered/Resolved]
  - Dysgeusia [Unknown]
